FAERS Safety Report 10966510 (Version 1)
Quarter: 2015Q1

REPORT INFORMATION
  Report Type: Spontaneous
  Country: US (occurrence: None)
  Receive Date: 20150226
  Receipt Date: 20150226
  Transmission Date: 20150721
  Serious: Yes (Hospitalization)
  Sender: FDA-Public Use
  Company Number: TPA2009A03095

PATIENT
  Age: 87 Year
  Sex: Female

DRUGS (3)
  1. ULORIC [Suspect]
     Active Substance: FEBUXOSTAT
     Indication: HYPERURICAEMIA
     Route: 048
     Dates: start: 2009, end: 2009
  2. UNSPECIFIED DIURETIC (DIURETICS) [Suspect]
     Active Substance: UNSPECIFIED INGREDIENT
     Indication: CARDIAC FAILURE CONGESTIVE
  3. ULORIC [Suspect]
     Active Substance: FEBUXOSTAT
     Indication: GOUT
     Route: 048
     Dates: start: 2009, end: 2009

REACTIONS (5)
  - Acute kidney injury [None]
  - Tongue dry [None]
  - Blood creatinine increased [None]
  - Dry mouth [None]
  - Lethargy [None]

NARRATIVE: CASE EVENT DATE: 2009
